FAERS Safety Report 4347786-2 (Version None)
Quarter: 2004Q2

REPORT INFORMATION
  Report Type: 
  Country: None (occurrence: None)
  Receive Date: 20040422
  Receipt Date: 20030827
  Transmission Date: 20050107
  Serious: Yes (Other)
  Sender: FDA-Public Use
  Company Number: 202213

PATIENT
  Age: 58 Year
  Sex: Male

DRUGS (1)
  1. CATHFLO ACTIVASE [Suspect]
     Indication: MEDICAL DEVICE COMPLICATION

REACTIONS (2)
  - CONVULSION [None]
  - HYPERHIDROSIS [None]
